FAERS Safety Report 10622476 (Version 2)
Quarter: 2014Q4

REPORT INFORMATION
  Report Type: Spontaneous
  Country: US (occurrence: US)
  Receive Date: 20141203
  Receipt Date: 20141231
  Transmission Date: 20150529
  Serious: No
  Sender: FDA-Public Use
  Company Number: US-BAXTER-2014BAX070767

PATIENT
  Sex: Male

DRUGS (2)
  1. DIANEAL LOW CALCIUM PERITONEAL DIALYSIS SOLUTION WITH DEXTROSE [Suspect]
     Active Substance: CALCIUM CHLORIDE\DEXTROSE\MAGNESIUM CHLORIDE\SODIUM CHLORIDE\SODIUM LACTATE
     Indication: PERITONEAL DIALYSIS
     Route: 033
  2. DIANEAL LOW CALCIUM PERITONEAL DIALYSIS SOLUTION WITH DEXTROSE [Suspect]
     Active Substance: CALCIUM CHLORIDE\DEXTROSE\MAGNESIUM CHLORIDE\SODIUM CHLORIDE\SODIUM LACTATE
     Indication: CHRONIC KIDNEY DISEASE

REACTIONS (4)
  - Fatigue [Recovered/Resolved]
  - Abdominal hernia [Recovering/Resolving]
  - Vomiting [Recovered/Resolved]
  - Malaise [Recovered/Resolved]
